FAERS Safety Report 5130636-4 (Version None)
Quarter: 2006Q4

REPORT INFORMATION
  Report Type: 
  Country: None (occurrence: None)
  Receive Date: 20061019
  Receipt Date: 20061016
  Transmission Date: 20070319
  Serious: Yes (Hospitalization)
  Sender: FDA-Public Use
  Company Number: JP-BAYER-200611127BYL

PATIENT
  Age: 38 Year
  Sex: Male

DRUGS (3)
  1. AVELOX [Suspect]
     Indication: LARYNGOPHARYNGITIS
     Dosage: TOTAL DAILY DOSE: 400 MG  UNIT DOSE: 400 MG
     Route: 048
     Dates: start: 20061011, end: 20061013
  2. SYLLABLE [Concomitant]
     Indication: LARYNGOPHARYNGITIS
     Dosage: UNIT DOSE: 10 MG
     Route: 048
     Dates: start: 20061011, end: 20061013
  3. PREDONINE [Concomitant]
     Indication: LARYNGOPHARYNGITIS
     Dosage: TOTAL DAILY DOSE: 40 MG  UNIT DOSE: 20 MG
     Route: 042
     Dates: start: 20061011, end: 20061012

REACTIONS (1)
  - GUILLAIN-BARRE SYNDROME [None]
